FAERS Safety Report 12262233 (Version 1)
Quarter: 2016Q2

REPORT INFORMATION
  Report Type: Spontaneous
  Country: US (occurrence: US)
  Receive Date: 20160413
  Receipt Date: 20160413
  Transmission Date: 20160815
  Serious: Yes (Other)
  Sender: FDA-Public Use
  Company Number: US-SUN PHARMACEUTICAL INDUSTRIES LTD-2016US-114363

PATIENT
  Age: 20 Year
  Sex: Female

DRUGS (2)
  1. ABSORICA [Suspect]
     Active Substance: ISOTRETINOIN
     Indication: PRODUCT USED FOR UNKNOWN INDICATION
     Dosage: 1 DF, TID
     Route: 065
     Dates: end: 201504
  2. ABSORICA [Suspect]
     Active Substance: ISOTRETINOIN
     Indication: PRODUCT USED FOR UNKNOWN INDICATION
     Dosage: 1 DF, DAILY
     Route: 065
     Dates: start: 201411

REACTIONS (21)
  - Depression [Recovered/Resolved]
  - Stress [Recovered/Resolved]
  - Tinnitus [Unknown]
  - Pruritus [Unknown]
  - Nail discolouration [Unknown]
  - Swollen tongue [Unknown]
  - Headache [Unknown]
  - Nightmare [Unknown]
  - Prescribed overdose [Unknown]
  - Abnormal behaviour [Recovered/Resolved]
  - Alopecia [Unknown]
  - Skin irritation [Unknown]
  - Paranoia [Recovered/Resolved]
  - Eating disorder [Unknown]
  - Formication [Unknown]
  - Drug prescribing error [Unknown]
  - Amenorrhoea [Unknown]
  - Feeling abnormal [Unknown]
  - Vomiting [Unknown]
  - Pain [Unknown]
  - Muscle contractions involuntary [Unknown]
